FAERS Safety Report 21283208 (Version 2)
Quarter: 2022Q3

REPORT INFORMATION
  Report Type: Spontaneous
  Country: US (occurrence: US)
  Receive Date: 20220901
  Receipt Date: 20220916
  Transmission Date: 20221027
  Serious: Yes (Other)
  Sender: FDA-Public Use
  Company Number: US-TEVA-2022-US-2068581

PATIENT
  Age: 9 Year
  Sex: Male

DRUGS (5)
  1. LANSOPRAZOLE [Suspect]
     Active Substance: LANSOPRAZOLE
     Indication: Eosinophilic oesophagitis
     Dosage: 30 MILLIGRAM DAILY;
     Route: 065
  2. BUDESONIDE [Suspect]
     Active Substance: BUDESONIDE
     Indication: Eosinophilic oesophagitis
     Dosage: VISCOUS, 1 MG
     Route: 048
  3. BUDESONIDE [Suspect]
     Active Substance: BUDESONIDE
     Dosage: DELAYED RELEASE, 9 MG
     Route: 048
  4. FLUTICASONE [Suspect]
     Active Substance: FLUTICASONE
     Indication: Eosinophilic oesophagitis
     Dosage: 88 MICROGRAM DAILY; 2 PUFFS
     Route: 048
  5. FLUTICASONE [Suspect]
     Active Substance: FLUTICASONE
     Dosage: 440 MICROGRAM DAILY; 2 PUFFS
     Route: 048

REACTIONS (3)
  - Cushingoid [Recovered/Resolved]
  - Drug ineffective [Unknown]
  - Off label use [Unknown]
